FAERS Safety Report 9125397 (Version 1)
Quarter: 2013Q1

REPORT INFORMATION
  Report Type: Spontaneous
  Country: JP (occurrence: JP)
  Receive Date: 20130227
  Receipt Date: 20130227
  Transmission Date: 20140127
  Serious: Yes (Hospitalization)
  Sender: FDA-Public Use
  Company Number: JP-ASTRAZENECA-2013SE11912

PATIENT
  Sex: Female

DRUGS (1)
  1. ZESTRIL [Suspect]
     Dosage: DOSE UNKNOWN
     Route: 048

REACTIONS (3)
  - Fracture [Unknown]
  - Chest discomfort [Unknown]
  - Blood pressure systolic decreased [Unknown]
